FAERS Safety Report 11641592 (Version 3)
Quarter: 2016Q4

REPORT INFORMATION
  Report Type: Report from Study
  Country: IT (occurrence: JP)
  Receive Date: 20151019
  Receipt Date: 20161021
  Transmission Date: 20170206
  Serious: Yes (Death, Hospitalization)
  Sender: FDA-Public Use
  Company Number: IT-SIGMA-TAU US-2015STPI000663

PATIENT
  Age: 71 Year
  Sex: Male

DRUGS (12)
  1. ARTIST [Concomitant]
     Active Substance: CARVEDILOL
  2. LUPRAC [Concomitant]
     Active Substance: TORSEMIDE
  3. NEXIUM [Suspect]
     Active Substance: ESOMEPRAZOLE MAGNESIUM
  4. FERROUS SODIUM CITRATE [Concomitant]
     Active Substance: SODIUM FERROUS CITRATE
  5. MAGLAX [Concomitant]
     Active Substance: MAGNESIUM OXIDE
  6. TRAZENTA [Concomitant]
     Active Substance: LINAGLIPTIN
  7. LIVALO [Concomitant]
     Active Substance: PITAVASTATIN CALCIUM
  8. REBAMIPIDE [Concomitant]
     Active Substance: REBAMIPIDE
  9. LEVOCARNITINE. [Suspect]
     Active Substance: LEVOCARNITINE
     Indication: CARNITINE DEFICIENCY
     Dosage: 1000 MG, TIW
     Route: 010
     Dates: start: 20150529, end: 20150826
  10. FUROSEMIDE. [Concomitant]
     Active Substance: FUROSEMIDE
  11. GLIMICRON [Concomitant]
     Active Substance: GLICLAZIDE
  12. MIRCERA [Concomitant]
     Active Substance: METHOXY POLYETHYLENE GLYCOL-EPOETIN BETA

REACTIONS (1)
  - Respiratory failure [Fatal]

NARRATIVE: CASE EVENT DATE: 20150703
